FAERS Safety Report 19324957 (Version 1)
Quarter: 2021Q2

REPORT INFORMATION
  Report Type: Spontaneous
  Country: FR (occurrence: FR)
  Receive Date: 20210528
  Receipt Date: 20210528
  Transmission Date: 20210717
  Serious: Yes (Hospitalization)
  Sender: FDA-Public Use
  Company Number: FR-ACCORD-226255

PATIENT
  Age: 59 Year
  Sex: Male
  Weight: 60.4 kg

DRUGS (9)
  1. CLARADOL [Suspect]
     Active Substance: ACETAMINOPHEN
     Indication: SCIATICA
     Dosage: 500 MG CAFFEINE, TABLET
     Route: 048
     Dates: end: 20210302
  2. ALIMTA [Suspect]
     Active Substance: PEMETREXED DISODIUM
     Indication: LUNG NEOPLASM MALIGNANT
     Dosage: 500 MG POWDER FOR CONCENTRATE FOR SOLUTION FOR INFUSION
     Route: 042
     Dates: start: 20210225, end: 20210225
  3. KEPPRA [Suspect]
     Active Substance: LEVETIRACETAM
     Indication: MYOCLONUS
     Route: 048
     Dates: start: 20210301, end: 20210302
  4. BETAHISTINE [Concomitant]
     Active Substance: BETAHISTINE
  5. FOLIC ACID. [Concomitant]
     Active Substance: FOLIC ACID
  6. PRAZEPAM [Concomitant]
     Active Substance: PRAZEPAM
  7. SIMVASTATIN. [Suspect]
     Active Substance: SIMVASTATIN
     Indication: DYSLIPIDAEMIA
     Route: 048
     Dates: end: 20210302
  8. CISPLATINE MYLAN [Suspect]
     Active Substance: CISPLATIN
     Indication: LUNG NEOPLASM MALIGNANT
     Route: 042
     Dates: start: 20210225, end: 20210225
  9. IZALGI [Suspect]
     Active Substance: ACETAMINOPHEN\OPIUM
     Indication: SCIATICA
     Route: 048
     Dates: end: 20210302

REACTIONS (1)
  - Lichenoid keratosis [Recovering/Resolving]

NARRATIVE: CASE EVENT DATE: 20210302
